FAERS Safety Report 12371460 (Version 1)
Quarter: 2016Q2

REPORT INFORMATION
  Report Type: Spontaneous
  Country: US (occurrence: US)
  Receive Date: 20160516
  Receipt Date: 20160516
  Transmission Date: 20160815
  Serious: Yes (Death, Other)
  Sender: FDA-Public Use
  Company Number: US-BAYER-2016-088016

PATIENT
  Age: 29 Year
  Sex: Female
  Weight: 102.49 kg

DRUGS (2)
  1. SKYLA [Suspect]
     Active Substance: LEVONORGESTREL
     Indication: CONTRACEPTION
     Dosage: 14 MCG/24HR, CONT
     Route: 015
     Dates: start: 20150618, end: 20150618
  2. MIRENA [Suspect]
     Active Substance: LEVONORGESTREL
     Dosage: 20 MCG/24HR, CONT
     Route: 015

REACTIONS (6)
  - Procedural haemorrhage [None]
  - Vaginitis bacterial [None]
  - Death [Fatal]
  - Medical device discomfort [None]
  - Medical device pain [None]
  - Vaginal discharge [None]

NARRATIVE: CASE EVENT DATE: 2015
